FAERS Safety Report 11507289 (Version 1)
Quarter: 2015Q3

REPORT INFORMATION
  Report Type: Spontaneous
  Country: US (occurrence: US)
  Receive Date: 20150915
  Receipt Date: 20150915
  Transmission Date: 20151125
  Serious: No
  Sender: FDA-Public Use
  Company Number: US-BANPHARM-20153984

PATIENT
  Age: 70 Year
  Sex: Male
  Weight: 90.72 kg

DRUGS (9)
  1. WAFARIN 2MG, 3 MG [Concomitant]
     Indication: ANTICOAGULANT THERAPY
     Dosage: 2 MG, 3 MG,
  2. TAMSULOSIN .4MG [Concomitant]
     Dosage: 1 DF, QD,
  3. CARVEDILOL. [Concomitant]
     Active Substance: CARVEDILOL
     Indication: HYPERTENSION
     Dosage: 2 DF, QD,
  4. CYCLOBENZAPRINE 10MG [Concomitant]
     Indication: MUSCLE RELAXANT THERAPY
     Dosage: 1 DF, QD,
  5. METFORMIN 500MG [Concomitant]
     Active Substance: METFORMIN HYDROCHLORIDE
     Indication: GLUCOSE TOLERANCE IMPAIRED
     Dosage: 1 DF, QD,
  6. ZYRTEC [Suspect]
     Active Substance: CETIRIZINE HYDROCHLORIDE
     Dosage: 1 DF, BID, TID,
     Route: 048
     Dates: start: 20150607, end: 20150608
  7. ALPRAZOLAM 1 MG [Concomitant]
     Indication: ANXIETY
     Dosage: DF 0.5 - 1 TBL, QD, PM,
  8. ATORVASTATIN 40 MG [Concomitant]
     Active Substance: ATORVASTATIN
     Indication: BLOOD CHOLESTEROL
     Dosage: 1 DF, QD,
  9. SERTRALINE [Concomitant]
     Active Substance: SERTRALINE HYDROCHLORIDE
     Indication: ANTIDEPRESSANT THERAPY
     Dosage: 1 DF{ QD,

REACTIONS (2)
  - Expired product administered [Unknown]
  - Drug ineffective [Unknown]
